FAERS Safety Report 11988999 (Version 1)
Quarter: 2016Q1

REPORT INFORMATION
  Report Type: Spontaneous
  Country: US (occurrence: US)
  Receive Date: 20160202
  Receipt Date: 20160202
  Transmission Date: 20160526
  Serious: No
  Sender: FDA-Public Use
  Company Number: US-ABBVIE-15K-163-1351371-00

PATIENT
  Age: 59 Year
  Sex: Female
  Weight: 72.64 kg

DRUGS (4)
  1. HUMIRA [Suspect]
     Active Substance: ADALIMUMAB
     Indication: PSORIATIC ARTHROPATHY
     Route: 065
     Dates: start: 201407
  2. CELEBREX [Concomitant]
     Active Substance: CELECOXIB
     Indication: PSORIATIC ARTHROPATHY
  3. HCTZ [Concomitant]
     Active Substance: HYDROCHLOROTHIAZIDE
     Indication: BLOOD PRESSURE MEASUREMENT
  4. SINGULAIR [Concomitant]
     Active Substance: MONTELUKAST SODIUM
     Indication: HYPERSENSITIVITY

REACTIONS (14)
  - Device issue [Unknown]
  - Pain in extremity [Not Recovered/Not Resolved]
  - Gait disturbance [Not Recovered/Not Resolved]
  - Injection site urticaria [Recovered/Resolved]
  - Injection site pruritus [Recovered/Resolved]
  - Psoriatic arthropathy [Unknown]
  - Peripheral swelling [Not Recovered/Not Resolved]
  - Underdose [Unknown]
  - Injection site urticaria [Recovered/Resolved]
  - Arthralgia [Not Recovered/Not Resolved]
  - Injection site pruritus [Recovered/Resolved]
  - Underdose [Recovered/Resolved]
  - Underdose [Recovered/Resolved]
  - Device issue [Unknown]

NARRATIVE: CASE EVENT DATE: 201412
